FAERS Safety Report 21658202 (Version 1)
Quarter: 2022Q4

REPORT INFORMATION
  Report Type: Spontaneous
  Country: US (occurrence: None)
  Receive Date: 20221128
  Receipt Date: 20221128
  Transmission Date: 20230112
  Serious: Yes (Life-Threatening, Other)
  Sender: FDA-Public Use
  Company Number: None

PATIENT
  Age: 24 Year
  Sex: Female
  Weight: 130.5 kg

DRUGS (1)
  1. NEXPLANON [Suspect]
     Active Substance: ETONOGESTREL
     Indication: Contraception
     Dosage: OTHER QUANTITY : 1 IMPLANT;?OTHER FREQUENCY : NEXPLANON IMPLANT;?OTHER ROUTE : CUT AND PLACED IN MY
     Route: 050
     Dates: start: 20220419, end: 20220810

REACTIONS (6)
  - Implant site pain [None]
  - Medical device site discomfort [None]
  - Hypoaesthesia [None]
  - Headache [None]
  - Vision blurred [None]
  - Complication of device removal [None]

NARRATIVE: CASE EVENT DATE: 20220810
